FAERS Safety Report 8958128 (Version 3)
Quarter: 2013Q1

REPORT INFORMATION
  Report Type: Spontaneous
  Country: US (occurrence: US)
  Receive Date: 20121211
  Receipt Date: 20130215
  Transmission Date: 20140127
  Serious: Yes (Other)
  Sender: FDA-Public Use
  Company Number: US-PFIZER INC-2012308150

PATIENT
  Age: 16 Year
  Sex: Female

DRUGS (1)
  1. CHAPSTICK LIP BALM [Suspect]
     Dosage: UNK

REACTIONS (7)
  - Hypersensitivity [Unknown]
  - Dermatitis contact [Unknown]
  - Oral bacterial infection [Unknown]
  - Abscess oral [Unknown]
  - Product contamination [Unknown]
  - Lip swelling [Unknown]
  - Oral mucosal blistering [Unknown]
